FAERS Safety Report 7055504-2 (Version None)
Quarter: 2010Q4

REPORT INFORMATION
  Report Type: 
  Country: None (occurrence: None)
  Receive Date: 20101021
  Receipt Date: 20101014
  Transmission Date: 20110411
  Serious: Yes (Other)
  Sender: FDA-Public Use
  Company Number: DE-PFIZER INC-2010103132

PATIENT
  Age: 61 Year
  Sex: Male
  Weight: 75 kg

DRUGS (4)
  1. ZYVOX [Suspect]
     Indication: STAPHYLOCOCCAL INFECTION
     Dosage: 600 MG, 2X/DAY
     Route: 048
     Dates: start: 20100201, end: 20100521
  2. RIFAMPICIN [Interacting]
     Indication: STAPHYLOCOCCAL INFECTION
     Dosage: 450 MG, 2X/DAY
     Route: 048
  3. MARCUMAR [Interacting]
     Dosage: VARIABLE, BASED ON INR
     Route: 048
     Dates: start: 20100301
  4. HEPARIN [Concomitant]
     Dosage: UNK
     Dates: end: 20100301

REACTIONS (2)
  - DRUG INTERACTION [None]
  - PROTHROMBIN TIME ABNORMAL [None]
